FAERS Safety Report 11220561 (Version 1)
Quarter: 2015Q2

REPORT INFORMATION
  Report Type: Spontaneous
  Country: CN (occurrence: CN)
  Receive Date: 20150626
  Receipt Date: 20150626
  Transmission Date: 20150821
  Serious: Yes (Other)
  Sender: FDA-Public Use
  Company Number: CN-UCBSA-2015020183

PATIENT
  Sex: Male
  Weight: 60 kg

DRUGS (6)
  1. FUROSEMIDE. [Suspect]
     Active Substance: FUROSEMIDE
     Indication: ASCITES
     Dosage: 6 DF, UNK
     Route: 048
     Dates: start: 201304
  2. ADEFOVIR DIPIVOXIL. [Concomitant]
     Active Substance: ADEFOVIR DIPIVOXIL
     Indication: PRODUCT USED FOR UNKNOWN INDICATION
     Dosage: UNK
  3. SPIRONOLACTONE. [Suspect]
     Active Substance: SPIRONOLACTONE
     Indication: ASCITES
     Dosage: 6 DF, ONCE DAILY (QD)
     Route: 048
     Dates: start: 201304
  4. ISOSORBIDE MONONITRATE. [Suspect]
     Active Substance: ISOSORBIDE MONONITRATE
     Indication: ASCITES
     Dosage: 1 DF, ONCE DAILY (QD)
     Route: 048
     Dates: start: 201304
  5. HEPTODIN [Suspect]
     Active Substance: LAMIVUDINE
     Indication: HEPATITIS B
     Dosage: 1 DF, ONCE DAILY (QD)
     Route: 048
     Dates: start: 201204
  6. ANETHOL TRITHIONE [Suspect]
     Active Substance: ANETHOLTRITHION
     Indication: HEPATITIS B
     Dosage: 1 DF, ONCE DAILY (QD)
     Route: 048
     Dates: start: 201304

REACTIONS (6)
  - Hepatitis B DNA increased [Not Recovered/Not Resolved]
  - Hyperthyroidism [Unknown]
  - Platelet count decreased [Not Recovered/Not Resolved]
  - Ascites [None]
  - Drug resistance [Not Recovered/Not Resolved]
  - Blood albumin decreased [Not Recovered/Not Resolved]

NARRATIVE: CASE EVENT DATE: 20150412
